FAERS Safety Report 23915631 (Version 1)
Quarter: 2024Q2

REPORT INFORMATION
  Report Type: Spontaneous
  Country: CA (occurrence: CA)
  Receive Date: 20240529
  Receipt Date: 20240529
  Transmission Date: 20240715
  Serious: Yes (Hospitalization, Other)
  Sender: FDA-Public Use
  Company Number: CA-FreseniusKabi-FK202408189

PATIENT
  Age: 45 Year
  Sex: Female

DRUGS (6)
  1. PIPERACILLIN SODIUM\TAZOBACTAM SODIUM [Suspect]
     Active Substance: PIPERACILLIN SODIUM\TAZOBACTAM SODIUM
     Indication: Infection
     Dosage: DOSAGE FORM: POWDER FOR SOLUTION INTRAVENOUS?ROUTE: INTRAVENOUS (NOT OTHERWISE SPECIFIED)
  2. AMBISOME [Suspect]
     Active Substance: AMPHOTERICIN B
     Indication: Infection
     Dosage: 1 EVERY 1 DAYS?16 GRAM?FORM: POWDER FOR SOLUTION INTRAVENOUS?ROUTE: INTRAVENOUS
  3. CYTARABINE [Suspect]
     Active Substance: CYTARABINE
     Indication: Acute myeloid leukaemia
     Dosage: 1 EVERY 1 DAYS?ROUTE: INTRAVENOUS
  4. DAUNORUBICIN HYDROCHLORIDE [Suspect]
     Active Substance: DAUNORUBICIN HYDROCHLORIDE
     Indication: Acute myeloid leukaemia
     Dosage: 1 EVERY 1 DAYS?ROUTE: INTRAVENOUS
  5. RYDAPT [Suspect]
     Active Substance: MIDOSTAURIN
     Indication: Acute myeloid leukaemia
     Dosage: 1 EVERY 1 DAYS?FORM: CAPSULE
  6. ACYCLOVIR [Concomitant]
     Active Substance: ACYCLOVIR
     Indication: Product used for unknown indication

REACTIONS (1)
  - Hyperbilirubinaemia [Unknown]
